FAERS Safety Report 6604957-X (Version None)
Quarter: 2010Q1

REPORT INFORMATION
  Report Type: 
  Country: None (occurrence: None)
  Receive Date: 20100219
  Receipt Date: 20100202
  Transmission Date: 20100710
  Serious: Yes (Life-Threatening, Hospitalization)
  Sender: FDA-Public Use
  Company Number: DK-001477

PATIENT
  Sex: Male
  Weight: 82 kg

DRUGS (1)
  1. DEGARELIX (DEGARELIX) 240 MG [Suspect]
     Indication: PROSTATE CANCER
     Dosage: 240 MG SUBCUTANEOUS
     Route: 058
     Dates: start: 20100128, end: 20100128

REACTIONS (3)
  - ANURIA [None]
  - CREATININE RENAL CLEARANCE DECREASED [None]
  - URETERIC OBSTRUCTION [None]
